FAERS Safety Report 18815969 (Version 1)
Quarter: 2021Q1

REPORT INFORMATION
  Report Type: Spontaneous
  Country: US (occurrence: US)
  Receive Date: 20210201
  Receipt Date: 20210201
  Transmission Date: 20210419
  Serious: Yes (Hospitalization)
  Sender: FDA-Public Use
  Company Number: None

PATIENT
  Age: 68 Year
  Sex: Female

DRUGS (1)
  1. BAMLANIVIMAB 700 MG/20 ML [Suspect]
     Active Substance: BAMLANIVIMAB
     Indication: CORONAVIRUS INFECTION
     Dates: start: 20210130, end: 20210130

REACTIONS (13)
  - Condition aggravated [None]
  - Pulmonary pain [None]
  - Tachypnoea [None]
  - Oxygen saturation decreased [None]
  - Cough [None]
  - Dyspnoea [None]
  - Anosmia [None]
  - Hypoxia [None]
  - Nausea [None]
  - Fatigue [None]
  - Tachycardia [None]
  - Heart rate decreased [None]
  - Lung disorder [None]

NARRATIVE: CASE EVENT DATE: 20210130
